FAERS Safety Report 17761758 (Version 1)
Quarter: 2020Q2

REPORT INFORMATION
  Report Type: Spontaneous
  Country: CN (occurrence: CN)
  Receive Date: 20200508
  Receipt Date: 20200508
  Transmission Date: 20200714
  Serious: Yes (Hospitalization)
  Sender: FDA-Public Use
  Company Number: CN-ASTRAZENECA-2020SE59790

PATIENT
  Age: 71 Year
  Sex: Male

DRUGS (5)
  1. BUDESONIDE. [Suspect]
     Active Substance: BUDESONIDE
     Indication: COUGH
     Route: 055
     Dates: start: 20200108, end: 20200108
  2. BUDESONIDE. [Suspect]
     Active Substance: BUDESONIDE
     Indication: ASTHMA
     Route: 055
     Dates: start: 20200108, end: 20200108
  3. IPRATROPIUM BROMIDE. [Suspect]
     Active Substance: IPRATROPIUM BROMIDE
     Indication: ASTHMA
     Route: 055
     Dates: start: 20200108, end: 20200108
  4. ACETYLCYSTEINE. [Suspect]
     Active Substance: ACETYLCYSTEINE
     Indication: PRODUCTIVE COUGH
     Route: 055
     Dates: start: 20200108, end: 20200108
  5. IPRATROPIUM BROMIDE. [Suspect]
     Active Substance: IPRATROPIUM BROMIDE
     Indication: COUGH
     Route: 055
     Dates: start: 20200108, end: 20200108

REACTIONS (2)
  - Asthma [Recovering/Resolving]
  - Dyspnoea [Recovering/Resolving]

NARRATIVE: CASE EVENT DATE: 20200108
